FAERS Safety Report 9416804 (Version 1)
Quarter: 2013Q3

REPORT INFORMATION
  Report Type: Spontaneous
  Country: US (occurrence: US)
  Receive Date: 20130724
  Receipt Date: 20130724
  Transmission Date: 20140515
  Serious: No
  Sender: FDA-Public Use
  Company Number: US-GALDERMA-US13000993

PATIENT
  Age: 65 Year
  Sex: Female
  Weight: 47.6 kg

DRUGS (7)
  1. ORACEA (DOXYCYCLINE, USP) CAPSULES 40 MG [Suspect]
     Indication: ROSACEA
     Route: 048
     Dates: start: 20101122, end: 201203
  2. ORACEA (DOXYCYCLINE, USP) CAPSULES 40 MG [Suspect]
     Route: 048
     Dates: start: 201212, end: 20130324
  3. OCTINOXATE\OCTISALATE\OXYBENZONE\ZINC OXIDE [Suspect]
     Route: 061
     Dates: start: 201302, end: 20130326
  4. FINACEA [Concomitant]
  5. CALCIUM [Concomitant]
     Route: 048
  6. MACULAR PROTECT COMPLETE [Concomitant]
     Route: 048
  7. GUAIFENESIN [Concomitant]
     Route: 048

REACTIONS (2)
  - Skin discolouration [Recovering/Resolving]
  - Yellow skin [Recovering/Resolving]
